FAERS Safety Report 10077748 (Version 1)
Quarter: 2014Q2

REPORT INFORMATION
  Report Type: Spontaneous
  Country: RO (occurrence: RO)
  Receive Date: 20140414
  Receipt Date: 20140414
  Transmission Date: 20141212
  Serious: Yes (Life-Threatening, Hospitalization, Other)
  Sender: FDA-Public Use
  Company Number: RO-ABBVIE-14P-135-1224447-00

PATIENT
  Age: 36 Year
  Sex: Male
  Weight: 87.5 kg

DRUGS (2)
  1. HUMIRA [Suspect]
     Indication: PSORIATIC ARTHROPATHY
     Route: 058
     Dates: start: 20130601
  2. METOTREXATE [Suspect]
     Indication: PSORIATIC ARTHROPATHY
     Route: 058
     Dates: start: 201301

REACTIONS (2)
  - Arterial stenosis [Not Recovered/Not Resolved]
  - Acute myocardial infarction [Recovered/Resolved]
